FAERS Safety Report 23063645 (Version 1)
Quarter: 2023Q4

REPORT INFORMATION
  Report Type: Spontaneous
  Country: US (occurrence: US)
  Receive Date: 20231013
  Receipt Date: 20231013
  Transmission Date: 20240109
  Serious: Yes (Other)
  Sender: FDA-Public Use
  Company Number: US-ALLERGAN-2227631US

PATIENT
  Age: 75 Year
  Sex: Female
  Weight: 86 kg

DRUGS (2)
  1. RESTASIS [Suspect]
     Active Substance: CYCLOSPORINE
     Indication: Cataract operation
     Dosage: TIME INTERVAL: 0.33333333 DAYS: 0.5MG/ML
     Route: 047
     Dates: start: 2021
  2. RESTASIS [Suspect]
     Active Substance: CYCLOSPORINE
     Dosage: DAILY DOSE: 2.0 GTT, FORM STRENGTH : 0.5 MILLIGRAM/MILLILITERS
     Route: 047
     Dates: start: 202207, end: 20220815

REACTIONS (6)
  - Cataract [Recovered/Resolved]
  - COVID-19 [Recovered/Resolved]
  - Off label use [Unknown]
  - Therapy interrupted [Unknown]
  - Cataract [Recovered/Resolved]
  - Lymphoedema [Recovering/Resolving]

NARRATIVE: CASE EVENT DATE: 20220201
